FAERS Safety Report 15027163 (Version 2)
Quarter: 2018Q3

REPORT INFORMATION
  Report Type: Spontaneous
  Country: US (occurrence: US)
  Receive Date: 20180619
  Receipt Date: 20180710
  Transmission Date: 20181010
  Serious: Yes (Other)
  Sender: FDA-Public Use
  Company Number: US-SAREPTA THERAPEUTICS, INC-SRP-000101-2018

PATIENT
  Age: 7 Year
  Sex: Male
  Weight: 20.4 kg

DRUGS (1)
  1. EXONDYS 51 [Suspect]
     Active Substance: ETEPLIRSEN
     Indication: DUCHENNE MUSCULAR DYSTROPHY
     Dosage: 600 MG, WEEKLY
     Route: 042
     Dates: start: 201803

REACTIONS (5)
  - Choking [Recovered/Resolved]
  - Panic reaction [Unknown]
  - Oropharyngeal pain [Unknown]
  - Cough [Recovered/Resolved]
  - Anxiety [Unknown]

NARRATIVE: CASE EVENT DATE: 201805
